FAERS Safety Report 10194966 (Version 2)
Quarter: 2014Q2

REPORT INFORMATION
  Report Type: Spontaneous
  Country: US (occurrence: US)
  Receive Date: 20140526
  Receipt Date: 20140526
  Transmission Date: 20141212
  Serious: Yes (Other)
  Sender: FDA-Public Use
  Company Number: US-PFIZER INC-2014136744

PATIENT
  Age: 76 Year
  Sex: Female

DRUGS (1)
  1. LATANOPROST [Suspect]
     Indication: GLAUCOMA
     Dosage: 1 GTT, 1X/DAY (1 DROP AT BED TIME EACH EYE)
     Route: 047
     Dates: start: 20110909, end: 20120319

REACTIONS (3)
  - Intraocular pressure increased [Unknown]
  - Drug hypersensitivity [Unknown]
  - Ocular hyperaemia [Unknown]
